FAERS Safety Report 5630065-0 (Version None)
Quarter: 2008Q1

REPORT INFORMATION
  Report Type: 
  Country: None (occurrence: None)
  Receive Date: 20080218
  Receipt Date: 20080212
  Transmission Date: 20080703
  Serious: Yes (Death)
  Sender: FDA-Public Use
  Company Number: US-GILEAD-2008-0015303

PATIENT
  Sex: Female

DRUGS (18)
  1. LETAIRIS [Suspect]
     Indication: PULMONARY HYPERTENSION
     Route: 048
     Dates: start: 20071201
  2. LISINOPRIL [Concomitant]
     Route: 048
  3. ZOCOR [Concomitant]
     Route: 048
  4. ZETIA [Concomitant]
     Route: 048
  5. COUMADIN [Concomitant]
     Route: 048
  6. TOPROL [Concomitant]
     Route: 048
  7. PROTONIX [Concomitant]
     Route: 048
  8. LASIX [Concomitant]
     Route: 048
  9. HYDRALAZINE HCL [Concomitant]
     Route: 048
  10. PRIMIDONE [Concomitant]
     Route: 048
  11. DARVOCET-N 100 [Concomitant]
     Route: 048
  12. OXAZEPAM [Concomitant]
     Route: 048
  13. MAG SR [Concomitant]
  14. PLAVIX [Concomitant]
     Route: 048
  15. GLIPIZIDE [Concomitant]
     Route: 048
  16. MECLIZINE [Concomitant]
  17. LEVOTHYROXINE SODIUM [Concomitant]
     Route: 048
  18. LORATADINE [Concomitant]
     Route: 048

REACTIONS (1)
  - DEATH [None]
